FAERS Safety Report 6814486-6 (Version None)
Quarter: 2010Q3

REPORT INFORMATION
  Report Type: 
  Country: None (occurrence: None)
  Receive Date: 20100702
  Receipt Date: 20100622
  Transmission Date: 20110219
  Serious: Yes (Hospitalization)
  Sender: FDA-Public Use
  Company Number: PHHY2010US26365

PATIENT
  Sex: Male

DRUGS (2)
  1. GLEEVEC [Suspect]
     Indication: GASTROINTESTINAL STROMAL TUMOUR
     Dosage: 400 MG, DAILY
     Route: 048
     Dates: start: 20100401, end: 20100510
  2. GLEEVEC [Suspect]
     Dosage: 400 MG DAILY
     Route: 048

REACTIONS (11)
  - ABDOMINAL PAIN [None]
  - COLOSTOMY [None]
  - FATIGUE [None]
  - FISTULA REPAIR [None]
  - GASTROINTESTINAL FISTULA [None]
  - GASTROINTESTINAL STROMAL TUMOUR [None]
  - INTESTINAL RESECTION [None]
  - NAUSEA [None]
  - PYREXIA [None]
  - TUMOUR EXCISION [None]
  - VOMITING [None]
